FAERS Safety Report 7659289 (Version 6)
Quarter: 2012Q4

REPORT INFORMATION
  Report Type: 
  Country: US (occurrence: US)
  Receive Date: 20101108
  Receipt Date: 20121030
  Transmission Date: 20130627
  Serious: No
  Sender: FDA-Public Use
  Company Number: US-BIOGENIDEC-2010BI038430

PATIENT
  Sex: Male

DRUGS (2)
  1. TYSABRI [Suspect]
     Indication: MULTIPLE SCLEROSIS
     Route: 042
     Dates: start: 20100622, end: 20110720
  2. FLUOXETINE [Concomitant]
     Indication: DEPRESSION

REACTIONS (17)
  - Dementia [Not Recovered/Not Resolved]
  - Hearing impaired [Unknown]
  - Mental impairment [Unknown]
  - Memory impairment [Unknown]
  - Visual acuity reduced [Not Recovered/Not Resolved]
  - Gait disturbance [Recovered/Resolved]
  - Screaming [Recovered/Resolved]
  - Anger [Recovered/Resolved]
  - Abnormal behaviour [Recovered/Resolved]
  - Musculoskeletal disorder [Not Recovered/Not Resolved]
  - Musculoskeletal stiffness [Not Recovered/Not Resolved]
  - Gastric disorder [Not Recovered/Not Resolved]
  - Weight decreased [Recovered/Resolved]
  - Appetite disorder [Recovered/Resolved]
  - Cough [Not Recovered/Not Resolved]
  - Nausea [Recovered/Resolved]
  - Vomiting [Recovered/Resolved]
